FAERS Safety Report 10108981 (Version 2)
Quarter: 2014Q2

REPORT INFORMATION
  Report Type: Report from Study
  Country: JP (occurrence: JP)
  Receive Date: 20140425
  Receipt Date: 20140425
  Transmission Date: 20141212
  Serious: Yes (Hospitalization)
  Sender: FDA-Public Use
  Company Number: JP-ROCHE-1289659

PATIENT
  Age: 46 Year
  Sex: Female
  Weight: 53.2 kg

DRUGS (22)
  1. OBINUTUZUMAB [Suspect]
     Indication: NON-HODGKIN^S LYMPHOMA UNSPECIFIED HISTOLOGY INDOLENT
     Dosage: DATE OF MOST RECENT DOSE (VOLUME : 250 ML, DOSE CONCENTRATION : 4 MG/ML) PRIOR TO SAE : 09/OCT/2013.
     Route: 042
     Dates: start: 20131002
  2. BENDAMUSTINE [Suspect]
     Indication: NON-HODGKIN^S LYMPHOMA UNSPECIFIED HISTOLOGY INDOLENT
     Dosage: DATE OF MOST RECENT DOSE (139.5 MG) PRIOR TO SAE ONSET : 03/OCT/2013.
     Route: 042
     Dates: start: 20131002
  3. PREDNISOLONE [Suspect]
     Indication: NON-HODGKIN^S LYMPHOMA UNSPECIFIED HISTOLOGY INDOLENT
     Dosage: DATE OF MOST RECENT DOSE (100 MG) PRIOR TO SAE ONSET : 02/OCT/2013.
     Route: 048
  4. BAKTAR [Concomitant]
     Route: 065
     Dates: start: 20131002, end: 20131012
  5. MUCOSTA [Concomitant]
     Route: 065
     Dates: start: 20131012, end: 20131012
  6. TERNELIN [Concomitant]
     Route: 065
     Dates: end: 20131012
  7. APREPITANT [Concomitant]
     Indication: PROPHYLAXIS OF NAUSEA AND VOMITING
     Route: 065
     Dates: start: 20131002, end: 20140306
  8. ACETAMINOPHEN [Concomitant]
     Indication: PREMEDICATION
     Route: 065
     Dates: start: 20131002
  9. SENNOSIDES A + B [Concomitant]
     Indication: PROPHYLAXIS
     Route: 065
     Dates: start: 20131005, end: 20140301
  10. METOCLOPRAMIDE [Concomitant]
     Indication: NAUSEA
     Route: 065
     Dates: start: 20131005, end: 20131009
  11. METOCLOPRAMIDE [Concomitant]
     Route: 065
     Dates: start: 20131010, end: 20140301
  12. ACICLOVIR [Concomitant]
     Indication: PROPHYLAXIS
     Route: 065
     Dates: start: 20131011, end: 20131012
  13. MAGLAX [Concomitant]
     Route: 065
     Dates: start: 20131005, end: 20131012
  14. MAGLAX [Concomitant]
     Route: 065
     Dates: start: 20131013
  15. LANSOPRAZOLE [Concomitant]
     Indication: GASTROOESOPHAGEAL REFLUX DISEASE
     Route: 065
     Dates: start: 20131002, end: 20131012
  16. LOXOPROFEN SODIUM [Concomitant]
     Indication: INSOMNIA
     Route: 065
     Dates: end: 20131212
  17. CHLORPHENIRAMINE MALEATE [Concomitant]
     Indication: PREMEDICATION
     Route: 065
     Dates: start: 20131002
  18. CHLORPHENIRAMINE MALEATE [Concomitant]
     Route: 065
     Dates: start: 20131012, end: 20131012
  19. REBAMIPIDE [Concomitant]
     Indication: PROPHYLAXIS
     Route: 065
     Dates: end: 20131012
  20. MAGNESIUM OXIDE [Concomitant]
     Indication: PROPHYLAXIS
     Route: 065
     Dates: start: 20131005, end: 20140301
  21. PALONOSETRON HYDROCHLORIDE [Concomitant]
     Indication: PROPHYLAXIS
     Route: 065
     Dates: start: 20131002
  22. PARIET [Concomitant]
     Indication: GASTROOESOPHAGEAL REFLUX DISEASE
     Dosage: THERAPY START DATE: 16/OCT/2013
     Route: 065
     Dates: start: 20131016, end: 20140301

REACTIONS (1)
  - Rash [Recovered/Resolved]
